FAERS Safety Report 6337576-3 (Version None)
Quarter: 2009Q3

REPORT INFORMATION
  Report Type: 
  Country: None (occurrence: None)
  Receive Date: 20090902
  Receipt Date: 20090821
  Transmission Date: 20100115
  Serious: Yes (Hospitalization, Other)
  Sender: FDA-Public Use
  Company Number: FI-ELI_LILLY_AND_COMPANY-FI200908004582

PATIENT
  Sex: Female

DRUGS (2)
  1. ZYPREXA [Suspect]
     Indication: RESTLESSNESS
     Dosage: 10 MG, 2/D
     Route: 048
     Dates: start: 20090601, end: 20090810
  2. CIPROFLOXACIN HCL [Concomitant]
     Indication: PYELONEPHRITIS
     Dosage: 500 MG, 2/D
     Route: 048
     Dates: start: 20090730, end: 20090809

REACTIONS (6)
  - AGGRESSION [None]
  - ANURIA [None]
  - FEELING ABNORMAL [None]
  - NEUROLEPTIC MALIGNANT SYNDROME [None]
  - OFF LABEL USE [None]
  - RESTLESSNESS [None]
